FAERS Safety Report 15335916 (Version 1)
Quarter: 2018Q3

REPORT INFORMATION
  Report Type: Spontaneous
  Country: US (occurrence: US)
  Receive Date: 20180827
  Receipt Date: 20180827
  Transmission Date: 20181010
  Serious: No
  Sender: FDA-Public Use
  Company Number: None

PATIENT
  Age: 79 Year
  Sex: Female

DRUGS (4)
  1. FUROSEMIDE. [Concomitant]
     Active Substance: FUROSEMIDE
  2. RANITIDNE [Concomitant]
  3. JANTOVEN [Concomitant]
     Active Substance: WARFARIN SODIUM
  4. ESBRIET [Suspect]
     Active Substance: PIRFENIDONE
     Dosage: ?          OTHER DOSE:3 TABLETS;?
     Route: 048

REACTIONS (1)
  - Dyspepsia [None]

NARRATIVE: CASE EVENT DATE: 20170828
